FAERS Safety Report 20288936 (Version 1)
Quarter: 2022Q1

REPORT INFORMATION
  Report Type: Spontaneous
  Country: US (occurrence: US)
  Receive Date: 20220104
  Receipt Date: 20220104
  Transmission Date: 20220423
  Serious: No
  Sender: FDA-Public Use
  Company Number: US-TEVA-2021-US-1994847

PATIENT

DRUGS (1)
  1. CARBIDOPA AND LEVODOPA [Suspect]
     Active Substance: CARBIDOPA\LEVODOPA
     Route: 065

REACTIONS (3)
  - Therapeutic product effect decreased [Unknown]
  - Product substitution issue [Unknown]
  - Adverse event [Unknown]
